FAERS Safety Report 14468487 (Version 1)
Quarter: 2018Q1

REPORT INFORMATION
  Report Type: Spontaneous
  Country: US (occurrence: US)
  Receive Date: 20180131
  Receipt Date: 20180131
  Transmission Date: 20180509
  Serious: Yes (Hospitalization, Other)
  Sender: FDA-Public Use
  Company Number: US-ASTRAZENECA-2018SE11242

PATIENT
  Age: 88 Year
  Sex: Male

DRUGS (11)
  1. LUPRON [Concomitant]
     Active Substance: LEUPROLIDE ACETATE
     Dosage: 45.0MG UNKNOWN
  2. PRAVASTATIN. [Concomitant]
     Active Substance: PRAVASTATIN
     Dosage: 20.0MG UNKNOWN
  3. LISINOPRIL. [Suspect]
     Active Substance: LISINOPRIL
     Dosage: 20.0MG UNKNOWN
     Route: 048
  4. MEGESTROL ACETATE. [Concomitant]
     Active Substance: MEGESTROL ACETATE
     Dosage: 20.0MG UNKNOWN
  5. BRILINTA [Suspect]
     Active Substance: TICAGRELOR
     Route: 048
  6. MEMANTINE. [Concomitant]
     Active Substance: MEMANTINE
     Dosage: 10.0MG UNKNOWN
  7. ASPIRIN. [Concomitant]
     Active Substance: ASPIRIN
     Dosage: 81.0MG UNKNOWN
  8. XTANDI [Interacting]
     Active Substance: ENZALUTAMIDE
     Indication: PROSTATE CANCER
     Route: 048
  9. CARVEDILOL. [Concomitant]
     Active Substance: CARVEDILOL
     Dosage: 10.0MG UNKNOWN
  10. XTANDI [Interacting]
     Active Substance: ENZALUTAMIDE
     Indication: PROSTATE CANCER
     Route: 048
     Dates: start: 20170310, end: 201708
  11. DONEPEZIL. [Concomitant]
     Active Substance: DONEPEZIL

REACTIONS (4)
  - Aneurysm [Recovered/Resolved]
  - Drug interaction [Not Recovered/Not Resolved]
  - Depression [Not Recovered/Not Resolved]
  - Dementia [Not Recovered/Not Resolved]

NARRATIVE: CASE EVENT DATE: 201708
